FAERS Safety Report 8200460-4 (Version None)
Quarter: 2012Q1

REPORT INFORMATION
  Report Type: 
  Country: None (occurrence: None)
  Receive Date: 20120301
  Receipt Date: 20120223
  Transmission Date: 20120608
  Serious: Yes (Death)
  Sender: FDA-Public Use
  Company Number: 2012031401

PATIENT
  Age: 90 Year
  Sex: Female
  Weight: 58.9676 kg

DRUGS (13)
  1. METOPROLOL TARTRATE [Concomitant]
  2. PACERONE (AMIODARONE HYDROCHORIDE) [Concomitant]
  3. LISINOPRIL [Concomitant]
  4. HIZENTRA [Suspect]
  5. MULTIVITAMIN (MULTIVITAMIN /00831701/) [Concomitant]
  6. DIGOXIN [Concomitant]
  7. ALBUTEROL [Concomitant]
  8. LASIX [Concomitant]
  9. ASPIRIN [Concomitant]
  10. OMEPRAZOLE [Concomitant]
  11. HIZENTRA [Suspect]
     Indication: IMMUNODEFICIENCY COMMON VARIABLE
     Dosage: SEE IMAGE
     Route: 058
  12. HIZENTRA [Suspect]
  13. KLOR-CON [Concomitant]

REACTIONS (1)
  - DEATH [None]
